FAERS Safety Report 8800976 (Version 1)
Quarter: 2012Q4

REPORT INFORMATION
  Report Type: 
  Country: US (occurrence: US)
  Receive Date: 20120921
  Receipt Date: 20120921
  Transmission Date: 20130627
  Serious: Yes (Other)
  Sender: FDA-Public Use
  Company Number: US-BAYER-2012-098669

PATIENT
  Sex: Female
  Weight: 98 kg

DRUGS (10)
  1. BETASERON [Suspect]
     Dosage: 0.3 mg, QOD
     Route: 058
  2. BETASERON [Suspect]
     Dosage: 0.25 ml, QOD
     Route: 058
  3. BETASERON [Suspect]
     Dosage: 0.5 ml, QOD
     Route: 058
  4. BETASERON [Suspect]
     Dosage: 0.75 ml, QOD
     Route: 058
  5. GABAPENTIN [Concomitant]
     Dosage: 300 mg, UNK
  6. WELLBUTRIN [Concomitant]
     Dosage: 150 mg, UNK
  7. CLONAZEPAM [Concomitant]
     Dosage: 0.5 mg, UNK
  8. CALCIUM +VIT D [Concomitant]
  9. MULTIVITAMIN [Concomitant]
  10. AMITIZA [Concomitant]
     Dosage: 8 ?g, UNK

REACTIONS (5)
  - Depression [Unknown]
  - Nightmare [Unknown]
  - Suicidal ideation [Unknown]
  - Hypoaesthesia [Unknown]
  - Memory impairment [Unknown]
